FAERS Safety Report 7301919-4 (Version None)
Quarter: 2011Q1

REPORT INFORMATION
  Report Type: 
  Country: None (occurrence: None)
  Receive Date: 20110218
  Receipt Date: 20110211
  Transmission Date: 20110831
  Serious: Yes (Other)
  Sender: FDA-Public Use
  Company Number: DE-AMGEN-DEUSP2010006274

PATIENT
  Age: 72 Year
  Sex: Male

DRUGS (15)
  1. NPLATE [Suspect]
     Indication: IDIOPATHIC THROMBOCYTOPENIC PURPURA
     Dosage: UNK, QWK
     Route: 058
     Dates: start: 20090604, end: 20100817
  2. NEXIUM [Concomitant]
     Indication: PRODUCT USED FOR UNKNOWN INDICATION
  3. BISOPROLOL [Concomitant]
     Indication: PRODUCT USED FOR UNKNOWN INDICATION
     Dosage: UNK
  4. PNEUMOVAX VACCIN [Concomitant]
     Indication: IMMUNISATION
     Dosage: UNK
     Route: 058
     Dates: start: 20090611
  5. HCT [Concomitant]
     Indication: PRODUCT USED FOR UNKNOWN INDICATION
     Dosage: 25 MG, UNK
  6. CYCLOSPORINE [Concomitant]
  7. COTRIM [Concomitant]
     Indication: PRODUCT USED FOR UNKNOWN INDICATION
     Dosage: 960 MG, 3 TIMES/WK
  8. IBUPROFEN [Concomitant]
     Indication: PRODUCT USED FOR UNKNOWN INDICATION
     Dosage: 400 UNK, UNK
  9. VOTUM                              /01635402/ [Concomitant]
     Indication: PRODUCT USED FOR UNKNOWN INDICATION
     Dosage: UNK MG, UNK
  10. VALTREX [Concomitant]
     Indication: PRODUCT USED FOR UNKNOWN INDICATION
     Dosage: 500 MG, UNK
  11. SANDIMMUNE [Concomitant]
     Indication: PRODUCT USED FOR UNKNOWN INDICATION
     Dosage: 160 MG, UNK
     Dates: start: 20061223
  12. ZYLORIC                            /00003301/ [Concomitant]
     Indication: PRODUCT USED FOR UNKNOWN INDICATION
     Dosage: 300 MG, UNK
  13. AQUAPHOR                           /00298701/ [Concomitant]
     Indication: PRODUCT USED FOR UNKNOWN INDICATION
  14. ELTROMBOPAG [Concomitant]
     Indication: PRODUCT USED FOR UNKNOWN INDICATION
  15. FELODIPINE [Concomitant]
     Indication: PRODUCT USED FOR UNKNOWN INDICATION

REACTIONS (13)
  - HYPERTENSION [None]
  - WHITE BLOOD CELL COUNT DECREASED [None]
  - ANAPHYLACTIC REACTION [None]
  - HAEMOGLOBIN DECREASED [None]
  - THERAPEUTIC RESPONSE DECREASED [None]
  - DERMATITIS [None]
  - FIBROSIS [None]
  - HYPERSENSITIVITY [None]
  - CHILLS [None]
  - CHOLELITHIASIS [None]
  - PYREXIA [None]
  - MYELODYSPLASTIC SYNDROME [None]
  - BENIGN PROSTATIC HYPERPLASIA [None]
